FAERS Safety Report 6403105-9 (Version None)
Quarter: 2009Q4

REPORT INFORMATION
  Report Type: 
  Country: None (occurrence: None)
  Receive Date: 20091016
  Receipt Date: 20091014
  Transmission Date: 20100525
  Serious: Yes (Death, Hospitalization)
  Sender: FDA-Public Use
  Company Number: PHHY2009NZ40943

PATIENT
  Sex: Male

DRUGS (1)
  1. CLOZARIL [Suspect]
     Indication: HALLUCINATION
     Dosage: 18.75 MG
     Route: 048
     Dates: start: 20070220

REACTIONS (5)
  - BLOOD AMYLASE INCREASED [None]
  - BLOOD CREATININE INCREASED [None]
  - COUGH [None]
  - PNEUMONIA ASPIRATION [None]
  - PYREXIA [None]
